FAERS Safety Report 21673239 (Version 1)
Quarter: 2022Q4

REPORT INFORMATION
  Report Type: Report from Study
  Country: PR (occurrence: PR)
  Receive Date: 20221202
  Receipt Date: 20221202
  Transmission Date: 20230112
  Serious: No
  Sender: FDA-Public Use
  Company Number: PR-ABBVIE-4181342

PATIENT
  Sex: Female

DRUGS (10)
  1. HUMIRA [Suspect]
     Active Substance: ADALIMUMAB
     Indication: Rheumatoid arthritis
     Route: 058
     Dates: start: 20220621, end: 20220913
  2. LOSARTAN [Concomitant]
     Active Substance: LOSARTAN
     Indication: Hypertension
     Route: 048
  3. VITAMIN D [Concomitant]
     Active Substance: VITAMIN D NOS
     Indication: Product used for unknown indication
  4. COZAAR [Concomitant]
     Active Substance: LOSARTAN POTASSIUM
     Indication: Product used for unknown indication
  5. METFORMIN [Concomitant]
     Active Substance: METFORMIN HYDROCHLORIDE
     Indication: Diabetes mellitus
     Route: 048
  6. Covid 19 vaccine [Concomitant]
     Indication: COVID-19
     Dosage: 1ST DOSE
     Route: 030
     Dates: start: 20210317, end: 20210317
  7. Covid 19 vaccine [Concomitant]
     Indication: COVID-19
     Dosage: 3RD DOSE
     Route: 030
     Dates: start: 20211120, end: 20211120
  8. Covid 19 vaccine [Concomitant]
     Indication: COVID-19
     Dosage: 4TH DOSE
     Route: 030
     Dates: start: 20220512, end: 20220512
  9. Covid 19 vaccine [Concomitant]
     Indication: COVID-19
     Dosage: 2ND DOSE
     Route: 030
     Dates: start: 20210408, end: 20210408
  10. TEMAZEPAM [Concomitant]
     Active Substance: TEMAZEPAM
     Indication: Product used for unknown indication

REACTIONS (1)
  - COVID-19 [Unknown]
